FAERS Safety Report 9204980 (Version 1)
Quarter: 2013Q2

REPORT INFORMATION
  Report Type: Spontaneous
  Country: CO (occurrence: CO)
  Receive Date: 20130402
  Receipt Date: 20130402
  Transmission Date: 20140414
  Serious: Yes (Other)
  Sender: FDA-Public Use
  Company Number: CO-ROCHE-1207320

PATIENT
  Age: 54 Year
  Sex: Female
  Weight: 53 kg

DRUGS (3)
  1. RANIBIZUMAB [Suspect]
     Indication: MACULAR DEGENERATION
     Dosage: DOSE: 1 DF
     Route: 050
     Dates: start: 20130204
  2. ACETAZOLAMIDE [Concomitant]
  3. INSULIN [Concomitant]

REACTIONS (8)
  - Fall [Not Recovered/Not Resolved]
  - Blindness unilateral [Recovering/Resolving]
  - Eye infection [Not Recovered/Not Resolved]
  - Retinal detachment [Not Recovered/Not Resolved]
  - Pain in extremity [Not Recovered/Not Resolved]
  - Limb injury [Not Recovered/Not Resolved]
  - Malaise [Not Recovered/Not Resolved]
  - Eye pain [Not Recovered/Not Resolved]
